FAERS Safety Report 5049519-3 (Version None)
Quarter: 2006Q3

REPORT INFORMATION
  Report Type: 
  Country: None (occurrence: None)
  Receive Date: 20060711
  Receipt Date: 20060711
  Transmission Date: 20061208
  Serious: Yes (Hospitalization)
  Sender: FDA-Public Use
  Company Number: None

PATIENT
  Age: 17 Year
  Sex: Female
  Weight: 67 kg

DRUGS (1)
  1. IVIG  -BRAND NOT LISTED- [Suspect]
     Dosage: 60G    ONE TIME   IV
     Route: 042
     Dates: start: 20060623, end: 20060623

REACTIONS (2)
  - INFUSION RELATED REACTION [None]
  - MENINGITIS ASEPTIC [None]
